FAERS Safety Report 20667143 (Version 2)
Quarter: 2022Q2

REPORT INFORMATION
  Report Type: Spontaneous
  Country: US (occurrence: US)
  Receive Date: 20220404
  Receipt Date: 20220420
  Transmission Date: 20220720
  Serious: No
  Sender: FDA-Public Use
  Company Number: US-AMGEN-USASP2022054016

PATIENT
  Age: 65 Year
  Sex: Female

DRUGS (2)
  1. PROLIA [Suspect]
     Active Substance: DENOSUMAB
     Indication: Product used for unknown indication
     Dosage: UNK
     Route: 065
  2. VITAMIN D [Concomitant]
     Active Substance: VITAMIN D NOS
     Route: 065

REACTIONS (14)
  - Adverse reaction [Unknown]
  - Loose tooth [Unknown]
  - Dry skin [Unknown]
  - Blood blister [Unknown]
  - Discomfort [Unknown]
  - Fungal infection [Unknown]
  - Eyelid thickening [Unknown]
  - Neck mass [Unknown]
  - Ear disorder [Recovering/Resolving]
  - Thyroid disorder [Unknown]
  - Skin exfoliation [Unknown]
  - Rash pruritic [Unknown]
  - Rash [Unknown]
  - Insomnia [Unknown]

NARRATIVE: CASE EVENT DATE: 20200801
